FAERS Safety Report 25244616 (Version 2)
Quarter: 2025Q2

REPORT INFORMATION
  Report Type: Spontaneous
  Country: US (occurrence: US)
  Receive Date: 20250428
  Receipt Date: 20250508
  Transmission Date: 20250716
  Serious: No
  Sender: Unknown Manufacturer
  Company Number: US-MTPC-MTPA2025-0007689

PATIENT
  Age: 61 Year
  Sex: Female

DRUGS (16)
  1. RADICAVA ORS [Suspect]
     Active Substance: EDARAVONE
     Dosage: 5 MILLILITER, QD FOR 10 DAYS WITHIN 14-DAY PERIOD, FOLLOWED BY 14-DAY DRUG-FREE PERIOD
     Route: 048
  2. RADICAVA ORS [Suspect]
     Active Substance: EDARAVONE
     Dosage: 5 MILLILITER, QD FOR 10 DAYS WITHIN 14-DAY PERIOD, FOLLOWED BY 14-DAY DRUG-FREE PERIOD
     Route: 048
  3. RADICAVA ORS [Suspect]
     Active Substance: EDARAVONE
     Indication: Amyotrophic lateral sclerosis
     Dosage: 5 MILLILITER, QD FOR 14 DAYS, FOLLOWED BY 14-DAY DRUG FREE PERIOD
     Route: 048
     Dates: start: 20250411
  4. RADICAVA ORS [Suspect]
     Active Substance: EDARAVONE
     Indication: Amyotrophic lateral sclerosis
     Dosage: 5 MILLILITER, QD FOR 14 DAYS, FOLLOWED BY 14-DAY DRUG FREE PERIOD
     Route: 048
     Dates: start: 20250411
  5. Calcium + magnesium + zink [Concomitant]
     Indication: Product used for unknown indication
     Dosage: 1 DOSAGE FORM, TID
     Route: 048
  6. FISH OIL [Concomitant]
     Active Substance: FISH OIL
     Indication: Product used for unknown indication
     Dosage: 1 DOSAGE FORM, QD
     Route: 048
  7. GABAPENTIN [Concomitant]
     Active Substance: GABAPENTIN
     Indication: Product used for unknown indication
     Dosage: 300 MILLIGRAM, BID
     Route: 048
  8. LISINOPRIL [Concomitant]
     Active Substance: LISINOPRIL
     Indication: Hypertension
     Dosage: 20 MILLIGRAM, QD
     Route: 048
  9. LORATADINE [Concomitant]
     Active Substance: LORATADINE
     Indication: Product used for unknown indication
     Dosage: 10 MILLIGRAM, QD
     Route: 048
  10. METFORMIN [Concomitant]
     Active Substance: METFORMIN HYDROCHLORIDE
     Indication: Product used for unknown indication
     Dosage: 500 MILLIGRAM, QD
     Route: 048
  11. Methyl B 12 [Concomitant]
     Indication: Product used for unknown indication
     Dosage: 10000 MICROGRAM, QD
     Route: 048
  12. PRAVASTATIN [Concomitant]
     Active Substance: PRAVASTATIN
     Indication: Product used for unknown indication
     Dosage: 40 MILLIGRAM, QD
     Route: 048
  13. QUETIAPINE [Concomitant]
     Active Substance: QUETIAPINE
     Indication: Product used for unknown indication
     Dosage: 25 MILLIGRAM, QD
     Route: 048
  14. RILUTEK [Concomitant]
     Active Substance: RILUZOLE
     Indication: Product used for unknown indication
     Dosage: 50 MILLIGRAM, QD
     Route: 065
  15. RILUTEK [Concomitant]
     Active Substance: RILUZOLE
     Dosage: 50 MILLIGRAM, BID
     Route: 048
  16. SERTRALINE [Concomitant]
     Active Substance: SERTRALINE HYDROCHLORIDE
     Indication: Product used for unknown indication
     Dosage: 100 MILLIGRAM, QD
     Route: 048

REACTIONS (1)
  - Paraesthesia [Unknown]
